FAERS Safety Report 13916885 (Version 2)
Quarter: 2017Q4

REPORT INFORMATION
  Report Type: Spontaneous
  Country: US (occurrence: US)
  Receive Date: 20170829
  Receipt Date: 20171220
  Transmission Date: 20180320
  Serious: No
  Sender: FDA-Public Use
  Company Number: US-LUNDBECK-DKLU2035874

PATIENT
  Sex: Female

DRUGS (1)
  1. NORTHERA [Suspect]
     Active Substance: DROXIDOPA
     Indication: PRODUCT USED FOR UNKNOWN INDICATION
     Dosage: SCHEDULE C TITRATION COMPLETE
     Route: 065

REACTIONS (5)
  - Therapeutic response decreased [Unknown]
  - Drug dose omission [Unknown]
  - Fatigue [Unknown]
  - Hypotension [Unknown]
  - Somnolence [Unknown]
